FAERS Safety Report 8825040 (Version 2)
Quarter: 2015Q2

REPORT INFORMATION
  Report Type: Report from Study
  Country: US (occurrence: US)
  Receive Date: 20121004
  Receipt Date: 20150410
  Transmission Date: 20150821
  Serious: Yes (Death)
  Sender: FDA-Public Use
  Company Number: US-ROCHE-1096372

PATIENT
  Sex: Male
  Weight: 83.46 kg

DRUGS (8)
  1. BENADRYL [Concomitant]
     Active Substance: DIPHENHYDRAMINE HYDROCHLORIDE
     Route: 042
  2. TYLENOL [Concomitant]
     Active Substance: ACETAMINOPHEN
  3. RITUXAN [Suspect]
     Active Substance: RITUXIMAB
     Indication: MALIGNANT LYMPHOID NEOPLASM
     Route: 042
     Dates: start: 20050711
  4. RITUXAN [Suspect]
     Active Substance: RITUXIMAB
     Indication: MALIGNANT HISTIOCYTOSIS
  5. DECADRON [Concomitant]
     Active Substance: DEXAMETHASONE
     Route: 042
  6. ARANESP [Concomitant]
     Active Substance: DARBEPOETIN ALFA
     Route: 065
  7. PEPCID [Concomitant]
     Active Substance: FAMOTIDINE
     Route: 048
  8. DEMEROL [Concomitant]
     Active Substance: MEPERIDINE HYDROCHLORIDE
     Route: 042

REACTIONS (2)
  - Chills [Unknown]
  - Death [Fatal]
